FAERS Safety Report 17768636 (Version 2)
Quarter: 2020Q2

REPORT INFORMATION
  Report Type: Spontaneous
  Country: US (occurrence: US)
  Receive Date: 20200512
  Receipt Date: 20200601
  Transmission Date: 20200714
  Serious: No
  Sender: FDA-Public Use
  Company Number: US-GILEAD-2020-0465754

PATIENT
  Sex: Male

DRUGS (5)
  1. SOFOSBUVIR;VELPATASVIR [Suspect]
     Active Substance: SOFOSBUVIR\VELPATASVIR
     Indication: CHRONIC HEPATITIS C
     Dosage: 1 DOSAGE FORM, QD
     Route: 048
     Dates: start: 20200505
  2. TESTOSTERONE. [Concomitant]
     Active Substance: TESTOSTERONE
  3. SOFOSBUVIR;VELPATASVIR [Suspect]
     Active Substance: SOFOSBUVIR\VELPATASVIR
     Dosage: 1 DOSAGE FORM, BID
     Route: 048
  4. GABAPENTIN. [Concomitant]
     Active Substance: GABAPENTIN
  5. SILDENAFIL. [Concomitant]
     Active Substance: SILDENAFIL

REACTIONS (3)
  - Fatigue [Unknown]
  - Peripheral swelling [Recovering/Resolving]
  - Overdose [Unknown]
